FAERS Safety Report 5030110-X (Version None)
Quarter: 2006Q2

REPORT INFORMATION
  Report Type: 
  Country: None (occurrence: None)
  Receive Date: 20060614
  Receipt Date: 20060602
  Transmission Date: 20061013
  Serious: Yes (Hospitalization, Other)
  Sender: FDA-Public Use
  Company Number: 2006071791

PATIENT
  Age: 59 Year
  Sex: Male

DRUGS (6)
  1. TAHOR (ATORVASTATIN) [Suspect]
     Indication: HYPERCHOLESTEROLAEMIA
     Dosage: 1 DF (INTERVAL EVERY DAY), ORAL
     Route: 048
  2. AMLODIPINE [Suspect]
     Indication: HYPERTENSION
     Dosage: 5 MG (5 MG, 1 IN 1 D), ORAL
     Route: 048
  3. ACETYLSALICYLATE LYSINE (ACETYLSALICYLATE LYSINE) [Suspect]
     Indication: HYPERTENSION
     Dosage: 1 DF (INTERVAL: EVERY DAY), ORAL
     Route: 048
  4. CLOPIDOGREL [Suspect]
     Indication: HYPERTENSION
     Dosage: 1 DF (INTERVAL: EVERY DAY), ORAL
     Route: 048
  5. BISOPROLOL FUMARATE [Suspect]
     Indication: ANGINA PECTORIS
     Dosage: 1 DF (INTERVAL: EVERY DAY), ORAL
     Route: 048
     Dates: end: 20051201
  6. NITROGLYCERIN [Suspect]
     Indication: ANGINA PECTORIS
     Dosage: 1 DF (INTERVAL: EVERY DAY), TRANSDERMAL
     Route: 062

REACTIONS (2)
  - LICHENOID KERATOSIS [None]
  - SYSTEMIC LUPUS ERYTHEMATOSUS [None]
